FAERS Safety Report 10350660 (Version 2)
Quarter: 2014Q3

REPORT INFORMATION
  Report Type: Spontaneous
  Country: TR (occurrence: TR)
  Receive Date: 20140730
  Receipt Date: 20140730
  Transmission Date: 20150326
  Serious: Yes (Other)
  Sender: FDA-Public Use
  Company Number: CHPA2014TR008907

PATIENT
  Age: 9 Year
  Sex: Male

DRUGS (4)
  1. CONVULEX [Concomitant]
     Active Substance: CARBAMAZEPINE OR VALPROIC ACID
     Dosage: UNK
     Route: 065
     Dates: start: 2010
  2. SCOPODERM TTS [Suspect]
     Active Substance: SCOPOLAMINE
     Dosage: 1 MG, EVERY 71 HOURS
     Dates: start: 20140620
  3. KEPPRA [Concomitant]
     Active Substance: LEVETIRACETAM
     Dosage: UNK
     Route: 065
     Dates: start: 2010
  4. LAMICTAL [Concomitant]
     Active Substance: LAMOTRIGINE
     Dosage: UNK
     Route: 065
     Dates: start: 2010

REACTIONS (3)
  - Tremor [Not Recovered/Not Resolved]
  - Drooling [Not Recovered/Not Resolved]
  - Convulsion [Not Recovered/Not Resolved]
